FAERS Safety Report 10243337 (Version 3)
Quarter: 2014Q3

REPORT INFORMATION
  Report Type: Report from Study
  Country: CA (occurrence: CA)
  Receive Date: 20140618
  Receipt Date: 20140714
  Transmission Date: 20150326
  Serious: Yes (Death, Hospitalization, Other)
  Sender: FDA-Public Use
  Company Number: PHHY2014CA003712

PATIENT
  Age: 90 Year
  Sex: Female

DRUGS (1)
  1. SANDOSTATIN LAR DEPOT [Suspect]
     Active Substance: OCTREOTIDE ACETATE
     Indication: INSULINOMA
     Dosage: 20 MG, EVERY 4 WEEKS
     Route: 030
     Dates: start: 20131211, end: 20140529

REACTIONS (5)
  - Injection site pain [Recovering/Resolving]
  - Blood glucose decreased [Not Recovered/Not Resolved]
  - Death [Fatal]
  - Clostridium difficile infection [Unknown]
  - Fall [Unknown]

NARRATIVE: CASE EVENT DATE: 20140602
